FAERS Safety Report 9149208 (Version 1)
Quarter: 2013Q1

REPORT INFORMATION
  Report Type: Spontaneous
  Country: CO (occurrence: CO)
  Receive Date: 20130308
  Receipt Date: 20130308
  Transmission Date: 20140127
  Serious: Yes (Other)
  Sender: FDA-Public Use
  Company Number: CO-PFIZER INC-2013070879

PATIENT
  Age: 15 Year
  Sex: Male

DRUGS (1)
  1. GENOTROPIN [Suspect]
     Indication: GROWTH HORMONE DEFICIENCY
     Dosage: 1.5 MG, 1X/DAY
     Route: 058
     Dates: start: 201110, end: 201210

REACTIONS (5)
  - Umbilical hernia [Not Recovered/Not Resolved]
  - Anaemia [Unknown]
  - Dizziness [Unknown]
  - Headache [Unknown]
  - Thirst [Unknown]
